FAERS Safety Report 24064577 (Version 3)
Quarter: 2024Q3

REPORT INFORMATION
  Report Type: Spontaneous
  Country: NL (occurrence: NL)
  Receive Date: 20240709
  Receipt Date: 20240930
  Transmission Date: 20241017
  Serious: No
  Sender: MYLAN
  Company Number: NL-MYLANLABS-2024M1062486

PATIENT

DRUGS (1)
  1. EPIPEN [Suspect]
     Active Substance: EPINEPHRINE
     Indication: Product used for unknown indication
     Dosage: UNK
     Route: 065

REACTIONS (2)
  - Needle issue [None]
  - Product quality issue [None]
